FAERS Safety Report 15576994 (Version 1)
Quarter: 2018Q4

REPORT INFORMATION
  Report Type: Report from Study
  Country: None (occurrence: CA)
  Receive Date: 20181101
  Receipt Date: 20181101
  Transmission Date: 20190205
  Serious: Yes (Other)
  Sender: FDA-Public Use
  Company Number: CA-ABBVIE-13P-028-1138805-00

PATIENT
  Sex: Male
  Weight: 72.64 kg

DRUGS (11)
  1. SALAZOPYRIN [Concomitant]
     Active Substance: SULFASALAZINE
     Indication: ANTIINFLAMMATORY THERAPY
     Route: 048
  2. FOLIC ACID. [Concomitant]
     Active Substance: FOLIC ACID
     Indication: PRODUCT USED FOR UNKNOWN INDICATION
     Route: 048
  3. ZINC. [Concomitant]
     Active Substance: ZINC
     Indication: HYPERHIDROSIS
     Route: 048
  4. ARTHROTEC (DICLOFENAC AND MISOPROSTOL) [Concomitant]
     Indication: ARTHRITIS
     Route: 048
  5. SANDOZ PANTOPRAZOLE [Concomitant]
     Indication: DYSPEPSIA
     Route: 048
  6. SYNTHROID [Concomitant]
     Active Substance: LEVOTHYROXINE SODIUM
     Indication: THYROID DISORDER
     Route: 048
  7. HUMIRA [Suspect]
     Active Substance: ADALIMUMAB
     Indication: RHEUMATOID ARTHRITIS
     Route: 058
     Dates: start: 20081017, end: 20130816
  8. RAMIPRIL. [Concomitant]
     Active Substance: RAMIPRIL
     Indication: BLOOD PRESSURE ABNORMAL
     Route: 048
  9. IRON [Concomitant]
     Active Substance: IRON
     Indication: PRODUCT USED FOR UNKNOWN INDICATION
     Route: 058
  10. VITAMIN D [Concomitant]
     Active Substance: CHOLECALCIFEROL
     Indication: SUPPLEMENTATION THERAPY
     Route: 048
  11. CALCIUM [Concomitant]
     Active Substance: CALCIUM
     Indication: SUPPLEMENTATION THERAPY
     Route: 048

REACTIONS (2)
  - Knee deformity [Not Recovered/Not Resolved]
  - Arthropathy [Not Recovered/Not Resolved]
